FAERS Safety Report 9039613 (Version 1)
Quarter: 2013Q1

REPORT INFORMATION
  Report Type: Report from Study
  Country: US (occurrence: US)
  Receive Date: 20130129
  Receipt Date: 20130129
  Transmission Date: 20140127
  Serious: No
  Sender: FDA-Public Use
  Company Number: US-ABBOTT-12P-163-0936134-00

PATIENT
  Age: 63 Year
  Sex: Female

DRUGS (5)
  1. HUMIRA 40 MG/0.8 ML PEN [Suspect]
     Indication: CROHN^S DISEASE
     Route: 058
     Dates: start: 20120317
  2. VASOTEC [Concomitant]
     Indication: HYPERTENSION
  3. MYSOLINE [Concomitant]
     Indication: PARKINSON^S DISEASE
  4. MIRAPEX [Concomitant]
     Indication: PARKINSON^S DISEASE
  5. UNSPECIFIED INGREDIENT [Concomitant]
     Indication: PRODUCT USED FOR UNKNOWN INDICATION

REACTIONS (4)
  - Fall [Unknown]
  - Joint swelling [Unknown]
  - Nausea [Not Recovered/Not Resolved]
  - Arthralgia [Unknown]
